FAERS Safety Report 6423252-5 (Version None)
Quarter: 2009Q4

REPORT INFORMATION
  Report Type: 
  Country: None (occurrence: None)
  Receive Date: 20091102
  Receipt Date: 20091029
  Transmission Date: 20100525
  Serious: Yes (Hospitalization)
  Sender: FDA-Public Use
  Company Number: GXKR2009DE11864

PATIENT
  Age: 81 Year
  Sex: Female

DRUGS (10)
  1. FALITHROM (NGX) [Interacting]
     Indication: ATRIAL FIBRILLATION
     Dosage: 3 MG, PRN
     Route: 048
     Dates: start: 20080609, end: 20080725
  2. THIAMAZOLE (NGX) [Suspect]
     Indication: TOXIC NODULAR GOITRE
     Dosage: 10 MG, TID
     Route: 048
     Dates: start: 20080609
  3. ACTOS [Concomitant]
     Indication: DIABETES MELLITUS
     Dosage: 15 MG, QD
     Route: 048
     Dates: start: 20080609, end: 20080726
  4. CALCIMAGON-D3 [Concomitant]
     Indication: OSTEOPOROSIS
     Route: 048
  5. CONCOR [Concomitant]
     Indication: PULMONARY HYPERTENSION
     Dosage: 2.5 MG, QD
     Route: 048
     Dates: start: 20070101
  6. RAMIPRIL [Concomitant]
     Indication: PULMONARY HYPERTENSION
     Dosage: 2.5 MG, BID
     Route: 048
     Dates: start: 20070101
  7. METFORMIN HCL [Concomitant]
     Indication: DIABETES MELLITUS
     Dosage: 1000 MG, BID
     Route: 048
     Dates: start: 20080701, end: 20080726
  8. METYLPREDNISOLON SOLUBILE [Concomitant]
     Indication: SARCOIDOSIS
     Dosage: 16 MG, QD
     Route: 048
     Dates: start: 20080609, end: 20080801
  9. SIMVASTATIN [Concomitant]
     Indication: CARDIOVASCULAR EVENT PROPHYLAXIS
     Dosage: 20 MG, QD
     Route: 048
     Dates: start: 20070101
  10. TORSEMIDE [Concomitant]
     Indication: HYPERTENSION
     Dosage: 10 MG, BID
     Route: 048
     Dates: start: 20070101

REACTIONS (2)
  - DRUG INTERACTION [None]
  - HAEMORRHAGE [None]
